FAERS Safety Report 9643334 (Version 2)
Quarter: 2013Q4

REPORT INFORMATION
  Report Type: Report from Study
  Country: US (occurrence: US)
  Receive Date: 20131024
  Receipt Date: 20131220
  Transmission Date: 20140711
  Serious: Yes (Hospitalization, Other)
  Sender: FDA-Public Use
  Company Number: US-ABBVIE-13P-163-1158513-00

PATIENT
  Age: 62 Year
  Sex: Male
  Weight: 142.56 kg

DRUGS (40)
  1. HUMIRA [Suspect]
     Indication: PSORIATIC ARTHROPATHY
     Dates: start: 2010, end: 201312
  2. UNNAMED MEDICATION [Suspect]
     Indication: PRODUCT USED FOR UNKNOWN INDICATION
  3. METHOTREXATE [Concomitant]
     Indication: PSORIATIC ARTHROPATHY
  4. PROAIR [Concomitant]
     Indication: ASTHMA
  5. LIPITOR [Concomitant]
     Indication: BLOOD CHOLESTEROL INCREASED
  6. COZAAR [Concomitant]
     Indication: HYPERTENSION
  7. QVAR [Concomitant]
     Indication: ASTHMA
  8. FENOFIBRATE [Concomitant]
     Indication: BLOOD CHOLESTEROL INCREASED
  9. GABAPENTIN [Concomitant]
     Indication: NEUROPATHY PERIPHERAL
  10. NORVASC [Concomitant]
     Indication: HYPERTENSION
  11. CELEXA [Concomitant]
     Indication: PRODUCT USED FOR UNKNOWN INDICATION
  12. CELEXA [Concomitant]
     Indication: DEPRESSED MOOD
  13. GLIPIZIDE [Concomitant]
     Indication: DIABETES MELLITUS
  14. FUROSEMIDE [Concomitant]
     Indication: LOCAL SWELLING
  15. FUROSEMIDE [Concomitant]
     Indication: FLUID RETENTION
  16. ZINC [Concomitant]
     Indication: VITAMIN SUPPLEMENTATION
  17. VITAMIN [Concomitant]
     Indication: VITAMIN SUPPLEMENTATION
  18. VITAMIN C [Concomitant]
     Indication: VITAMIN SUPPLEMENTATION
  19. VITAMIN D NOS [Concomitant]
     Indication: METABOLIC DISORDER
  20. TURMERIC [Concomitant]
     Indication: LIVER DISORDER
  21. TURMERIC [Concomitant]
     Indication: RENAL DISORDER
  22. CINNAMON [Concomitant]
     Indication: LIVER DISORDER
  23. GRAPE SEED EXTRACT [Concomitant]
     Indication: ANGIOPATHY
  24. LYSINE [Concomitant]
     Indication: PSORIASIS
  25. CALCIUM [Concomitant]
     Indication: BONE DISORDER
  26. MAGNESIUM [Concomitant]
     Indication: NERVOUS SYSTEM DISORDER
  27. MAGNESIUM [Concomitant]
     Indication: NERVOUS SYSTEM DISORDER
  28. GLUCOSAMINE [Concomitant]
     Indication: ARTHROPATHY
  29. FISH OIL [Concomitant]
     Indication: CARDIAC DISORDER
  30. METFORMIN [Concomitant]
     Indication: DIABETES MELLITUS
  31. BACLOFEN [Concomitant]
     Indication: PAIN
  32. BACLOFEN [Concomitant]
     Indication: MUSCLE SPASMS
  33. FOLIC ACID [Concomitant]
     Indication: FATIGUE
  34. LOSARTAN [Concomitant]
     Indication: HYPERTENSION
  35. LYRICA [Concomitant]
     Indication: BACK PAIN
  36. LYRICA [Concomitant]
     Indication: DEPRESSION
  37. LYRICA [Concomitant]
     Indication: SERUM SEROTONIN DECREASED
  38. LYRICA [Concomitant]
     Indication: ILL-DEFINED DISORDER
  39. LYRICA [Concomitant]
     Indication: NEURALGIA
  40. TRAZODONE [Concomitant]
     Indication: INSOMNIA

REACTIONS (13)
  - Suicide attempt [Recovered/Resolved]
  - Renal failure acute [Unknown]
  - Fatigue [Recovered/Resolved]
  - Gout [Not Recovered/Not Resolved]
  - Therapeutic response unexpected [Not Recovered/Not Resolved]
  - Feeling abnormal [Unknown]
  - Overdose [Recovered/Resolved]
  - Limb injury [Not Recovered/Not Resolved]
  - Hyperkeratosis [Not Recovered/Not Resolved]
  - Local swelling [Not Recovered/Not Resolved]
  - Localised infection [Not Recovered/Not Resolved]
  - Skin ulcer [Not Recovered/Not Resolved]
  - Wound haemorrhage [Recovered/Resolved]
